FAERS Safety Report 5797734-3 (Version None)
Quarter: 2008Q2

REPORT INFORMATION
  Report Type: 
  Country: None (occurrence: None)
  Receive Date: 20080630
  Receipt Date: 20080617
  Transmission Date: 20081010
  Serious: Yes (Other)
  Sender: FDA-Public Use
  Company Number: 49607

PATIENT
  Sex: Female

DRUGS (1)
  1. METHOTREXATE [Suspect]
     Dosage: 0.4 CC SUBCUTANEOUSLY ONCE WEEKLY
     Route: 058
     Dates: start: 20071101

REACTIONS (1)
  - MEDICATION ERROR [None]
